FAERS Safety Report 5081802-8 (Version None)
Quarter: 2006Q3

REPORT INFORMATION
  Report Type: 
  Country: None (occurrence: None)
  Receive Date: 20060816
  Receipt Date: 20060731
  Transmission Date: 20061208
  Serious: Yes (Congenital Anomaly)
  Sender: FDA-Public Use
  Company Number: IT-GLAXOSMITHKLINE-B0433236A

PATIENT
  Weight: 1.5 kg

DRUGS (1)
  1. IMIGRAN [Suspect]
     Indication: DRUG EXPOSURE DURING PREGNANCY
     Dosage: 100MG AS REQUIRED
     Dates: start: 20051111, end: 20060331

REACTIONS (7)
  - CAESAREAN SECTION [None]
  - CARDIOVASCULAR DISORDER [None]
  - CONGENITAL ANOMALY [None]
  - DRUG EXPOSURE DURING PREGNANCY [None]
  - FOETAL GROWTH RETARDATION [None]
  - PREMATURE BABY [None]
  - UTERINE DISORDER [None]
